FAERS Safety Report 7687387-1 (Version None)
Quarter: 2011Q3

REPORT INFORMATION
  Report Type: 
  Country: None (occurrence: None)
  Receive Date: 20110816
  Receipt Date: 20110726
  Transmission Date: 20111222
  Serious: Yes (Other)
  Sender: FDA-Public Use
  Company Number: IT-BAYER-2011-050857

PATIENT
  Age: 49 Year
  Sex: Male

DRUGS (1)
  1. ULTRAVIST 150 [Suspect]
     Indication: COMPUTERISED TOMOGRAM
     Dosage: 370 MG, ONCE
     Route: 042
     Dates: start: 20110606, end: 20110606

REACTIONS (6)
  - NAUSEA [None]
  - ABDOMINAL PAIN [None]
  - ERYTHEMA [None]
  - MESENTERITIS [None]
  - HYPERPYREXIA [None]
  - DYSPNOEA [None]
